FAERS Safety Report 5453199-2 (Version None)
Quarter: 2007Q3

REPORT INFORMATION
  Report Type: 
  Country: None (occurrence: None)
  Receive Date: 20070914
  Receipt Date: 20070905
  Transmission Date: 20080115
  Serious: Yes (Other)
  Sender: FDA-Public Use
  Company Number: US-MERCK-0607USA00823

PATIENT
  Age: 60 Year
  Sex: Female

DRUGS (7)
  1. FOSAMAX [Suspect]
     Route: 048
     Dates: start: 19980801, end: 20050101
  2. FOSAMAX [Suspect]
     Route: 048
     Dates: start: 19970106
  3. ACCUPRIL [Concomitant]
     Route: 065
  4. LASIX [Concomitant]
     Route: 065
  5. GLUCOPHAGE [Concomitant]
     Route: 065
  6. GLIPIZIDE [Concomitant]
     Route: 065
  7. CLARITIN [Concomitant]
     Route: 065

REACTIONS (14)
  - ANKLE FRACTURE [None]
  - CARPAL TUNNEL SYNDROME [None]
  - DYSPNOEA [None]
  - FALL [None]
  - JAW CYST [None]
  - JAW DISORDER [None]
  - LOOSE TOOTH [None]
  - LOWER LIMB FRACTURE [None]
  - OSTEOARTHRITIS [None]
  - OSTEOMYELITIS [None]
  - OSTEONECROSIS [None]
  - OVERDOSE [None]
  - RETINAL DETACHMENT [None]
  - SINUSITIS [None]
